FAERS Safety Report 7161383-5 (Version None)
Quarter: 2010Q4

REPORT INFORMATION
  Report Type: 
  Country: None (occurrence: None)
  Receive Date: 20101215
  Receipt Date: 20101206
  Transmission Date: 20110411
  Serious: Yes (Disabling, Other)
  Sender: FDA-Public Use
  Company Number: BR-BRISTOL-MYERS SQUIBB COMPANY-15441082

PATIENT
  Age: 64 Year
  Sex: Female

DRUGS (1)
  1. METFORMIN HYDROCHLORIDE [Suspect]
     Indication: DIABETES MELLITUS
     Dosage: THERAPY DURATIION:1 YEAR
     Route: 048

REACTIONS (5)
  - CHILLS [None]
  - DEAFNESS UNILATERAL [None]
  - HYPERHIDROSIS [None]
  - MALAISE [None]
  - VIRAL INFECTION [None]
